FAERS Safety Report 11379415 (Version 1)
Quarter: 2015Q3

REPORT INFORMATION
  Report Type: Spontaneous
  Country: FR (occurrence: None)
  Receive Date: 20150812
  Receipt Date: 20150812
  Transmission Date: 20151125
  Serious: Yes (Other)
  Sender: FDA-Public Use
  Company Number: NL01PV15_39412

PATIENT
  Age: 68 Year
  Sex: Male

DRUGS (9)
  1. TAMSULOSINE [Suspect]
     Active Substance: TAMSULOSIN HYDROCHLORIDE
     Indication: BENIGN PROSTATIC HYPERPLASIA
     Route: 048
     Dates: start: 201502
  2. DIFFU K ([POTASSIUM CHLORIDE) [Concomitant]
  3. SIM VASTATI BIOGARAN SIMVASTATIN) [Concomitant]
  4. LASILIX (FUROSEMIDE SODIUM) [Concomitant]
  5. PREVISCAN (FLUINDIONE) [Concomitant]
     Active Substance: FLUINDIONE
  6. BISOPROLOL BIOGARAN (BISOPROLOL FUMARATE) [Concomitant]
  7. AMIODARONE BIOGARAN (AMIODARONE HYDROCHLORIDE) [Concomitant]
  8. UNKNOWN (TAMSULOSIN) UNKNOWN [Suspect]
     Active Substance: TAMSULOSIN
  9. RAMIPRIL BIOGARAN [Concomitant]
     Active Substance: RAMIPRIL

REACTIONS (3)
  - Creatinine renal clearance decreased [None]
  - Orthostatic hypotension [None]
  - Blood creatinine increased [None]
